FAERS Safety Report 7775717-1 (Version None)
Quarter: 2011Q3

REPORT INFORMATION
  Report Type: 
  Country: None (occurrence: None)
  Receive Date: 20110923
  Receipt Date: 20110912
  Transmission Date: 20111222
  Serious: Yes (Hospitalization)
  Sender: FDA-Public Use
  Company Number: FR-GLAXOSMITHKLINE-B0747080A

PATIENT
  Age: 34 Year
  Sex: Male
  Weight: 98 kg

DRUGS (3)
  1. ANTIHYPERTENSIVE (UNSPECIFIED) [Concomitant]
  2. VALACYCLOVIR HYDROCHLORIDE [Suspect]
     Indication: KERATITIS HERPETIC
     Route: 048
     Dates: start: 20080101, end: 20100924
  3. ZOVIRAX [Suspect]
     Indication: KERATITIS HERPETIC
     Dosage: 7MGK THREE TIMES PER DAY
     Route: 042
     Dates: start: 20071201, end: 20080101

REACTIONS (1)
  - RENAL FAILURE CHRONIC [None]
